FAERS Safety Report 20001070 (Version 1)
Quarter: 2021Q4

REPORT INFORMATION
  Report Type: Spontaneous
  Country: US (occurrence: US)
  Receive Date: 20211027
  Receipt Date: 20211027
  Transmission Date: 20220303
  Serious: Yes (Disabling)
  Sender: FDA-Public Use
  Company Number: None

PATIENT
  Age: 10 Year
  Sex: Female

DRUGS (1)
  1. STERILE WATER FOR IRRIGATION [Suspect]
     Active Substance: WATER
     Indication: Product used for unknown indication
     Dosage: ?          OTHER ROUTE:PEG-TUBE ADMINISTRATION
     Dates: start: 20211025, end: 20211025

REACTIONS (2)
  - Autonomic nervous system imbalance [None]
  - Product preparation issue [None]

NARRATIVE: CASE EVENT DATE: 20211025
